FAERS Safety Report 9244869 (Version 1)
Quarter: 2013Q1

REPORT INFORMATION
  Report Type: Spontaneous
  Country: US (occurrence: None)
  Receive Date: 20121130
  Receipt Date: 20121130
  Transmission Date: 20140127
  Serious: Yes (Hospitalization, Other)
  Sender: FDA-Public Use
  Company Number: US201208007355

PATIENT
  Age: 50 Year
  Sex: Female
  Weight: 116.1 kg

DRUGS (12)
  1. BYETTA (EXENATIDE) PEN, DISPOSABLE [Suspect]
     Indication: TYPE 2 DIABETES MELLITUS
     Route: 058
     Dates: start: 20120123
  2. COLACE (DOCUSATE SODIUM) [Suspect]
     Dates: start: 20120626
  3. METFORMIN (METFORMIN) [Concomitant]
  4. GLIPIZIDE (GLIPIZIDE) [Concomitant]
  5. KLOR-CON M10 (POTASSIUM CHLORIDE) [Concomitant]
  6. FUROSEMIDE (FUROSEMIDE) [Concomitant]
  7. METOPROLOL (METOPROLOL) [Concomitant]
  8. SIMVASTATIN (SIMVASTATIN) [Suspect]
  9. PROVENTIL HFA (SALBUTAMOL) [Concomitant]
  10. LISINOPRIL (LISINOPRIL) [Concomitant]
  11. OMEPRAZOLE (OMEPRAZOLE) [Concomitant]
  12. FERROUS GLUCONATE (FERROUS GLUCONATE) [Concomitant]

REACTIONS (8)
  - Pancreatitis acute [None]
  - Duodenal ulcer [None]
  - Weight decreased [None]
  - Flatulence [None]
  - Abdominal distension [None]
  - Nausea [None]
  - Vomiting [None]
  - Abdominal pain upper [None]
